FAERS Safety Report 12089018 (Version 1)
Quarter: 2016Q1

REPORT INFORMATION
  Report Type: Spontaneous
  Country: US (occurrence: US)
  Receive Date: 20160218
  Receipt Date: 20160218
  Transmission Date: 20160526
  Serious: No
  Sender: FDA-Public Use
  Company Number: US-TEVA-622487USA

PATIENT
  Sex: Male
  Weight: 89.89 kg

DRUGS (14)
  1. FINASTERIDE. [Concomitant]
     Active Substance: FINASTERIDE
     Indication: URINE FLOW DECREASED
  2. METHOCARBAMOL. [Concomitant]
     Active Substance: METHOCARBAMOL
     Indication: BACK PAIN
  3. AMANTADINE [Concomitant]
     Active Substance: AMANTADINE
     Dosage: 50 MILLIGRAM DAILY;
     Route: 048
     Dates: start: 2010
  4. AZILECT [Concomitant]
     Active Substance: RASAGILINE MESYLATE
     Indication: PARKINSON^S DISEASE
     Dosage: 1 MILLIGRAM DAILY; DAILY AT 0500
     Route: 048
  5. MIRALAX [Concomitant]
     Active Substance: POLYETHYLENE GLYCOL 3350
     Indication: CONSTIPATION
     Dosage: 17 GM BY MOUTH DAILY DISSOLVED IN 8 OZ OF WATER
     Route: 048
     Dates: start: 201512
  6. RANITIDINE [Concomitant]
     Active Substance: RANITIDINE\RANITIDINE HYDROCHLORIDE
     Indication: NAUSEA
  7. PRAMIPEXOLE. [Suspect]
     Active Substance: PRAMIPEXOLE
     Indication: PARKINSON^S DISEASE
     Route: 048
     Dates: start: 2010
  8. FINASTERIDE. [Concomitant]
     Active Substance: FINASTERIDE
     Indication: PROSTATOMEGALY
     Dosage: 5 MILLIGRAM DAILY;
     Route: 048
     Dates: start: 2010
  9. METHOCARBAMOL. [Concomitant]
     Active Substance: METHOCARBAMOL
     Indication: MUSCLE SPASMS
     Dosage: 3 TIMES A DAY AS NEEDED
     Route: 048
  10. CARBIDOPA/LEVO [Concomitant]
     Indication: PARKINSON^S DISEASE
     Dosage: 25/100MG (AND HALF TABLET WHEN NEEDED FOR PARKINSON^S)
     Route: 048
  11. RANITIDINE [Concomitant]
     Active Substance: RANITIDINE\RANITIDINE HYDROCHLORIDE
     Indication: EPIGASTRIC DISCOMFORT
     Dosage: 300 MILLIGRAM DAILY;
     Route: 048
     Dates: start: 2009
  12. METOPROLOL XL [Concomitant]
     Active Substance: METOPROLOL SUCCINATE
     Indication: HYPERTENSION
     Dosage: 25 MILLIGRAM DAILY;
     Route: 048
     Dates: start: 2008
  13. TAMSULOSIN [Concomitant]
     Active Substance: TAMSULOSIN
     Indication: PROSTATOMEGALY
     Dosage: .4 MILLIGRAM DAILY;
     Route: 048
     Dates: start: 201505
  14. TAMSULOSIN [Concomitant]
     Active Substance: TAMSULOSIN
     Indication: URINE FLOW DECREASED

REACTIONS (2)
  - Drug effect incomplete [Unknown]
  - Dyskinesia [Unknown]
